FAERS Safety Report 16112599 (Version 2)
Quarter: 2019Q4

REPORT INFORMATION
  Report Type: Spontaneous
  Country: US (occurrence: US)
  Receive Date: 20190325
  Receipt Date: 20191015
  Transmission Date: 20200122
  Serious: No
  Sender: FDA-Public Use
  Company Number: US-PFIZER INC-2018130976

PATIENT
  Age: 59 Year
  Sex: Female

DRUGS (1)
  1. XALKORI [Suspect]
     Active Substance: CRIZOTINIB
     Indication: LUNG NEOPLASM MALIGNANT
     Dosage: 250 MG, 2X/DAY
     Route: 048
     Dates: start: 201710

REACTIONS (7)
  - Alopecia [Unknown]
  - Blood pressure diastolic decreased [Unknown]
  - Diarrhoea [Recovered/Resolved]
  - Taste disorder [Unknown]
  - Memory impairment [Unknown]
  - Regurgitation [Unknown]
  - Constipation [Unknown]
